FAERS Safety Report 7571903-4 (Version None)
Quarter: 2011Q2

REPORT INFORMATION
  Report Type: 
  Country: None (occurrence: None)
  Receive Date: 20110624
  Receipt Date: 20100902
  Transmission Date: 20111010
  Serious: No
  Sender: FDA-Public Use
  Company Number: A0879242A

PATIENT
  Age: 33 Year
  Sex: Male
  Weight: 84.1 kg

DRUGS (2)
  1. UNKNOWN [Concomitant]
  2. VERAMYST [Suspect]
     Route: 065
     Dates: end: 20100902

REACTIONS (1)
  - HEADACHE [None]
